FAERS Safety Report 19140730 (Version 1)
Quarter: 2021Q2

REPORT INFORMATION
  Report Type: Spontaneous
  Country: US (occurrence: US)
  Receive Date: 20210415
  Receipt Date: 20210415
  Transmission Date: 20210717
  Serious: No
  Sender: FDA-Public Use
  Company Number: None

PATIENT
  Age: 37 Year
  Sex: Male
  Weight: 80.1 kg

DRUGS (6)
  1. BLOOD PRESSURE MEDICINE [Concomitant]
     Active Substance: UNSPECIFIED INGREDIENT
  2. MULTIVITAMIN [Concomitant]
     Active Substance: VITAMINS
  3. INVANZ [Suspect]
     Active Substance: ERTAPENEM SODIUM
     Indication: URINARY TRACT INFECTION
     Dosage: ?          OTHER ROUTE:INJECTED VIA PORT?
     Dates: start: 20210405, end: 20210407
  4. POTASSIUM [Concomitant]
     Active Substance: POTASSIUM
  5. PROBIOTIC [Concomitant]
     Active Substance: PROBIOTICS NOS
  6. MAGNESIUM [Concomitant]
     Active Substance: MAGNESIUM

REACTIONS (14)
  - Feeling abnormal [None]
  - Hypoaesthesia oral [None]
  - Dizziness [None]
  - Feeling hot [None]
  - Skin tightness [None]
  - Headache [None]
  - Paraesthesia oral [None]
  - Diplopia [None]
  - Visual impairment [None]
  - Dysphagia [None]
  - Liver injury [None]
  - Hallucination, visual [None]
  - Cerebral disorder [None]
  - Pharyngeal hypoaesthesia [None]

NARRATIVE: CASE EVENT DATE: 20210405
